FAERS Safety Report 7703779-6 (Version None)
Quarter: 2011Q3

REPORT INFORMATION
  Report Type: 
  Country: None (occurrence: None)
  Receive Date: 20110823
  Receipt Date: 20110812
  Transmission Date: 20111222
  Serious: Yes (Other)
  Sender: FDA-Public Use
  Company Number: CA-JNJFOC-20110600454

PATIENT
  Sex: Female
  Weight: 76.3 kg

DRUGS (5)
  1. IMURAN [Concomitant]
     Route: 048
  2. INFLIXIMAB, RECOMBINANT [Suspect]
     Indication: CROHN'S DISEASE
     Dosage: 1ST INFUSION
     Route: 042
     Dates: start: 20090820
  3. INFLIXIMAB, RECOMBINANT [Suspect]
     Dosage: 13TH INFUSION
     Route: 042
     Dates: start: 20110331
  4. INFLIXIMAB, RECOMBINANT [Suspect]
     Dosage: 2-12 INFUSION
     Route: 042
  5. INFLIXIMAB, RECOMBINANT [Suspect]
     Dosage: 14TH INFUSION
     Route: 042
     Dates: start: 20110526

REACTIONS (2)
  - BLOOD GLUCOSE INCREASED [None]
  - HYPERTENSION [None]
